FAERS Safety Report 13780813 (Version 1)
Quarter: 2017Q3

REPORT INFORMATION
  Report Type: Spontaneous
  Country: US (occurrence: US)
  Receive Date: 20170721
  Receipt Date: 20170721
  Transmission Date: 20171127
  Serious: Yes (Hospitalization)
  Sender: FDA-Public Use
  Company Number: None

PATIENT
  Age: 23 Year
  Sex: Male
  Weight: 129 kg

DRUGS (1)
  1. ZYPREXA ZYDIS [Suspect]
     Active Substance: OLANZAPINE
     Indication: AGITATION
     Dosage: ?          OTHER DOSE:MG;?
     Route: 060

REACTIONS (3)
  - Drug screen [None]
  - Respiratory failure [None]
  - Unresponsive to stimuli [None]

NARRATIVE: CASE EVENT DATE: 20170721
